FAERS Safety Report 21196302 (Version 1)
Quarter: 2022Q3

REPORT INFORMATION
  Report Type: Spontaneous
  Country: US (occurrence: US)
  Receive Date: 20220810
  Receipt Date: 20220810
  Transmission Date: 20221026
  Serious: No
  Sender: FDA-Public Use
  Company Number: US-GILEAD-2022-0593107

PATIENT

DRUGS (1)
  1. VEMLIDY [Suspect]
     Active Substance: TENOFOVIR ALAFENAMIDE FUMARATE
     Indication: Product used for unknown indication
     Dosage: 25 MG (2 WEEKS INTO TAKING THE DRUG)
     Route: 065

REACTIONS (1)
  - Musculoskeletal pain [Not Recovered/Not Resolved]
